FAERS Safety Report 7574209-2 (Version None)
Quarter: 2011Q2

REPORT INFORMATION
  Report Type: 
  Country: None (occurrence: None)
  Receive Date: 20110627
  Receipt Date: 20110617
  Transmission Date: 20111010
  Serious: Yes (Hospitalization, Other)
  Sender: FDA-Public Use
  Company Number: PHHY2011BR53977

PATIENT
  Sex: Female

DRUGS (11)
  1. MONOCORDIL [Concomitant]
     Dosage: 3 DF, DAILY
     Route: 048
  2. GLYBURIDE [Concomitant]
     Dosage: 1 DF, DAILY
     Route: 048
  3. INDAPEN [Concomitant]
     Dosage: 1 DF, DAILY
     Route: 048
  4. METHYLDOPA [Concomitant]
     Dosage: 2 DF, DAILY
     Route: 048
  5. EXFORGE [Suspect]
     Dosage: 1 DF, DAILY
  6. GALVUS MET [Suspect]
     Dosage: 2 DF, DAILY
  7. SIMVASTATIN [Concomitant]
     Dosage: 1 DF, DAILY
     Route: 048
  8. OMEPRAZOLE [Concomitant]
     Dosage: 1 DF, DAILY
     Route: 048
  9. RASILEZ [Suspect]
     Dosage: 1 DF, DAILY
  10. ASPIRIN [Concomitant]
     Dosage: 2 DF, DAILY
     Route: 048
  11. LEVOTHYROXINE SODIUM [Concomitant]
     Dosage: 1 DF, DAILY
     Route: 048

REACTIONS (2)
  - CEREBROVASCULAR ACCIDENT [None]
  - GAIT DISTURBANCE [None]
